FAERS Safety Report 5010137-4 (Version None)
Quarter: 2006Q2

REPORT INFORMATION
  Report Type: 
  Country: None (occurrence: None)
  Receive Date: 20060404
  Receipt Date: 20051207
  Transmission Date: 20061013
  Serious: No
  Sender: FDA-Public Use
  Company Number: US200512001594

PATIENT
  Age: 40 Year
  Sex: Female

DRUGS (2)
  1. CYMBALTA [Suspect]
     Dosage: SEE IMAGE
     Route: 048
  2. SEROQUEL [Concomitant]

REACTIONS (5)
  - ACCIDENTAL OVERDOSE [None]
  - CONSTIPATION [None]
  - DRY MOUTH [None]
  - MEDICATION ERROR [None]
  - PRESCRIBED OVERDOSE [None]
